FAERS Safety Report 21443545 (Version 3)
Quarter: 2023Q1

REPORT INFORMATION
  Report Type: Report from Study
  Country: US (occurrence: US)
  Receive Date: 20221012
  Receipt Date: 20230227
  Transmission Date: 20230417
  Serious: Yes (Other)
  Sender: FDA-Public Use
  Company Number: US-ABBVIE-4150913

PATIENT
  Weight: 55 kg

DRUGS (8)
  1. HUMIRA [Suspect]
     Active Substance: ADALIMUMAB
     Indication: Rheumatoid arthritis
     Dosage: START DATE TEXT: 12 YEARS MORE
     Route: 058
  2. HUMIRA [Suspect]
     Active Substance: ADALIMUMAB
     Route: 058
  3. PFIZER-BIONTECH COVID-19 VACCINE [Concomitant]
     Active Substance: TOZINAMERAN
     Indication: COVID-19 immunisation
     Dosage: ONCE
     Route: 030
  4. PFIZER-BIONTECH COVID-19 VACCINE [Concomitant]
     Active Substance: TOZINAMERAN
     Indication: COVID-19 immunisation
     Dosage: ONE IN ONCE FREQUENCY
     Route: 030
  5. PREDNISONE [Concomitant]
     Active Substance: PREDNISONE
     Indication: Pain management
     Dosage: TIME INTERVAL: AS NECESSARY
  6. TOPIRAMATE [Concomitant]
     Active Substance: TOPIRAMATE
     Indication: Rheumatic disorder
  7. LEVOBUPIVACAINE [Concomitant]
     Active Substance: LEVOBUPIVACAINE
     Indication: Rheumatoid arthritis
  8. MIRTAZAPINE [Concomitant]
     Active Substance: MIRTAZAPINE
     Indication: Product used for unknown indication

REACTIONS (6)
  - Fall [Recovered/Resolved]
  - C-reactive protein increased [Unknown]
  - Drug ineffective [Not Recovered/Not Resolved]
  - Red blood cell sedimentation rate increased [Unknown]
  - Hernia [Not Recovered/Not Resolved]
  - Arthritis [Not Recovered/Not Resolved]
